FAERS Safety Report 4469245-9 (Version None)
Quarter: 2004Q4

REPORT INFORMATION
  Report Type: 
  Country: None (occurrence: None)
  Receive Date: 20041008
  Receipt Date: 20030801
  Transmission Date: 20050328
  Serious: No
  Sender: FDA-Public Use
  Company Number: US-BRISTOL-MYERS SQUIBB COMPANY-12344743

PATIENT
  Age: 66 Year
  Sex: Female
  Weight: 68 kg

DRUGS (4)
  1. AVAPRO [Suspect]
     Indication: DEPRESSION
     Route: 048
     Dates: start: 20030617, end: 20030618
  2. PROVIGIL [Concomitant]
  3. BEXTRA [Concomitant]
  4. PRILOSEC [Concomitant]

REACTIONS (3)
  - DIZZINESS [None]
  - INFLUENZA LIKE ILLNESS [None]
  - NAUSEA [None]
